FAERS Safety Report 5179702-8 (Version None)
Quarter: 2006Q4

REPORT INFORMATION
  Report Type: 
  Country: None (occurrence: None)
  Receive Date: 20061212
  Receipt Date: 20061207
  Transmission Date: 20070319
  Serious: Yes (Other)
  Sender: FDA-Public Use
  Company Number: 200612AGG00535

PATIENT
  Age: 80 Year
  Sex: Female
  Weight: 78 kg

DRUGS (4)
  1. AGGRASTAT [Suspect]
     Indication: ELECTROCARDIOGRAM
     Dosage: IV (ICH 042)
     Route: 042
     Dates: start: 20061110
  2. CLOPIDOGREL BISULFATE [Concomitant]
  3. HEPARIN LOW MOLECULAR WEIGHT [Concomitant]
  4. INSULIN [Concomitant]

REACTIONS (6)
  - BLOOD CHOLESTEROL INCREASED [None]
  - BLOOD GLUCOSE INCREASED [None]
  - EJECTION FRACTION DECREASED [None]
  - GLYCOSYLATED HAEMOGLOBIN INCREASED [None]
  - MYOCARDIAL INFARCTION [None]
  - PROTEINURIA [None]
